FAERS Safety Report 13537775 (Version 2)
Quarter: 2017Q2

REPORT INFORMATION
  Report Type: Report from Study
  Country: DE (occurrence: DE)
  Receive Date: 20170511
  Receipt Date: 20170523
  Transmission Date: 20170830
  Serious: Yes (Hospitalization, Other)
  Sender: FDA-Public Use
  Company Number: DE-BRISTOL-MYERS SQUIBB COMPANY-BMS-2017-039135

PATIENT
  Age: 52 Year
  Sex: Male
  Weight: 121 kg

DRUGS (13)
  1. ISLA-MOOS [Concomitant]
     Indication: COUGH
     Dosage: 1 UNK, UNK
     Route: 048
     Dates: start: 20170105
  2. NIVOLUMAB [Suspect]
     Active Substance: NIVOLUMAB
     Indication: MALIGNANT MELANOMA
     Dosage: 121 MG, LAST DOSE: 11APR17
     Route: 042
     Dates: start: 20170105
  3. DEXASINE                           /00016001/ [Concomitant]
     Indication: UVEITIS
     Dosage: 1 UNK, UNK
     Route: 047
     Dates: start: 20170310
  4. FEXOFENADINE [Concomitant]
     Active Substance: FEXOFENADINE\FEXOFENADINE HYDROCHLORIDE
     Indication: RASH
     Dosage: 360 MG, UNK
     Route: 048
     Dates: start: 20170309
  5. OMEPRAZOL                          /00661201/ [Concomitant]
     Active Substance: OMEPRAZOLE
     Indication: PRODUCT USED FOR UNKNOWN INDICATION
     Dosage: 20 MG, UNK
     Route: 048
     Dates: start: 20170309
  6. FLUTIVATE [Concomitant]
     Indication: PRODUCT USED FOR UNKNOWN INDICATION
     Dosage: UNK
     Route: 065
  7. IPILIMUMAB [Suspect]
     Active Substance: IPILIMUMAB
     Indication: MALIGNANT MELANOMA
     Dosage: 363 MG, LAST DOSE: 11APR17
     Route: 042
     Dates: start: 20170105
  8. IMIDIN N [Concomitant]
     Indication: DRY MOUTH
     Dosage: 1 DF, UNK
     Route: 045
     Dates: start: 20170130
  9. IMIDIN N [Concomitant]
     Indication: COUGH
     Route: 065
  10. FLOXAL [Concomitant]
     Active Substance: OFLOXACIN
     Indication: UVEITIS
     Dosage: UNK
     Route: 047
     Dates: start: 20170310
  11. ARTELAC                            /00445101/ [Concomitant]
     Indication: DRY EYE
     Dosage: 1 DF:1.000 UNIT NOS, QD
     Route: 047
     Dates: start: 20170210
  12. L THYROXIN [Concomitant]
     Active Substance: LEVOTHYROXINE SODIUM
     Indication: HYPOPHYSITIS
     Dosage: 75 MG, UNK
     Route: 048
     Dates: start: 20170312
  13. ISLA-MOOS [Concomitant]
     Indication: DRY MOUTH
     Route: 065

REACTIONS (1)
  - Pneumonia [Recovered/Resolved]

NARRATIVE: CASE EVENT DATE: 20170426
